FAERS Safety Report 6335313-X (Version None)
Quarter: 2009Q3

REPORT INFORMATION
  Report Type: 
  Country: None (occurrence: None)
  Receive Date: 20090827
  Receipt Date: 19940518
  Transmission Date: 20100115
  Serious: Yes (Other)
  Sender: FDA-Public Use
  Company Number: 2009009200

PATIENT
  Age: 35 Year
  Sex: Male
  Weight: 85 kg

DRUGS (3)
  1. MODAFINIL [Suspect]
     Indication: NARCOLEPSY
     Dosage: (100 MG, 2 TABS AM AND PM AND 6 TABS ON WEDS), ORAL; (100 MG, 1-2 TABLETS DAILY), ORAL
     Route: 048
     Dates: start: 19940222, end: 19940501
  2. MODAFINIL [Suspect]
     Indication: NARCOLEPSY
     Dosage: (100 MG, 2 TABS AM AND PM AND 6 TABS ON WEDS), ORAL; (100 MG, 1-2 TABLETS DAILY), ORAL
     Route: 048
     Dates: start: 19940601
  3. PROZAC [Concomitant]

REACTIONS (12)
  - ABDOMINAL PAIN UPPER [None]
  - CHOLESTASIS [None]
  - CHROMATURIA [None]
  - DECREASED APPETITE [None]
  - DIARRHOEA [None]
  - EUPHORIC MOOD [None]
  - FAECES DISCOLOURED [None]
  - HEADACHE [None]
  - LOGORRHOEA [None]
  - MUSCULOSKELETAL STIFFNESS [None]
  - NAUSEA [None]
  - WEIGHT DECREASED [None]
